FAERS Safety Report 5673046-3 (Version None)
Quarter: 2008Q1

REPORT INFORMATION
  Report Type: 
  Country: None (occurrence: None)
  Receive Date: 20080319
  Receipt Date: 20080118
  Transmission Date: 20080703
  Serious: No
  Sender: FDA-Public Use
  Company Number: US-ASTRAZENECA-2008UW01428

PATIENT
  Age: 82 Year
  Sex: Female
  Weight: 46.7 kg

DRUGS (10)
  1. SYMBICORT [Suspect]
     Indication: CHRONIC OBSTRUCTIVE PULMONARY DISEASE
     Dosage: 80/4.5 UG 2 PUFFS IN AM 2 PUFFS IN PM
     Route: 055
  2. SYMBICORT [Suspect]
     Indication: BRONCHITIS
     Dosage: 80/4.5 UG 2 PUFFS IN AM 2 PUFFS IN PM
     Route: 055
  3. SYMBICORT [Suspect]
     Indication: ASTHMA
     Dosage: 80/4.5 UG 2 PUFFS IN AM 2 PUFFS IN PM
     Route: 055
  4. ALBUTEROL [Concomitant]
     Dosage: 7-9  PUFFS DAILY
  5. SPIRIVA [Concomitant]
  6. VERAPAMIL [Concomitant]
  7. HYDROCHLOROTHIAZIDE [Concomitant]
  8. SYNTHROID [Concomitant]
  9. EVISTA [Concomitant]
  10. FOSAMAX [Concomitant]

REACTIONS (2)
  - COUGH [None]
  - PALPITATIONS [None]
